FAERS Safety Report 22278196 (Version 2)
Quarter: 2023Q2

REPORT INFORMATION
  Report Type: Report from Study
  Country: CR (occurrence: CR)
  Receive Date: 20230503
  Receipt Date: 20230508
  Transmission Date: 20230722
  Serious: No
  Sender: FDA-Public Use
  Company Number: CR-MYLANLABS-2023M1046153

PATIENT
  Age: 59 Year
  Sex: Female
  Weight: 47 kg

DRUGS (2)
  1. NORVASC [Suspect]
     Active Substance: AMLODIPINE BESYLATE
     Indication: Blood pressure abnormal
     Dosage: 0.5 DOSAGE FORM, QD (HALF A TABLET)
     Route: 048
  2. Coryol [Concomitant]
     Indication: Product used for unknown indication
     Dosage: 0.5 DOSAGE FORM, QD (HALF A TABLET)
     Route: 048

REACTIONS (3)
  - Emotional distress [Not Recovered/Not Resolved]
  - Malaise [Not Recovered/Not Resolved]
  - Wrong technique in product usage process [Not Recovered/Not Resolved]

NARRATIVE: CASE EVENT DATE: 20220125
